FAERS Safety Report 15171839 (Version 1)
Quarter: 2018Q3

REPORT INFORMATION
  Report Type: Report from Study
  Country: US (occurrence: US)
  Receive Date: 20180720
  Receipt Date: 20180720
  Transmission Date: 20181010
  Serious: No
  Sender: FDA-Public Use
  Company Number: US-AMGEN-USASL2018055955

PATIENT
  Sex: Male

DRUGS (1)
  1. REPATHA [Suspect]
     Active Substance: EVOLOCUMAB
     Indication: HYPERCHOLESTEROLAEMIA
     Dosage: 140 MG, Q2WK
     Route: 065
     Dates: start: 20180413

REACTIONS (7)
  - Nasopharyngitis [Unknown]
  - Influenza like illness [Unknown]
  - Sleep disorder due to a general medical condition [Unknown]
  - Chest pain [Unknown]
  - Wheezing [Unknown]
  - Back pain [Unknown]
  - Dysphagia [Unknown]
